FAERS Safety Report 7392097-4 (Version None)
Quarter: 2011Q2

REPORT INFORMATION
  Report Type: 
  Country: None (occurrence: None)
  Receive Date: 20110404
  Receipt Date: 20110325
  Transmission Date: 20111010
  Serious: Yes (Hospitalization)
  Sender: FDA-Public Use
  Company Number: A0773179A

PATIENT
  Age: 60 Year
  Sex: Female
  Weight: 76.5 kg

DRUGS (7)
  1. ZOCOR [Concomitant]
  2. MICARDIS [Concomitant]
  3. AVANDAMET [Suspect]
     Route: 048
     Dates: start: 20060822, end: 20070601
  4. GLUCOTROL [Concomitant]
  5. METOPROLOL [Concomitant]
  6. GABAPENTIN [Concomitant]
  7. AVANDIA [Suspect]
     Indication: DIABETES MELLITUS
     Dosage: 4MG PER DAY
     Route: 048
     Dates: end: 20060821

REACTIONS (2)
  - MYOCARDIAL INFARCTION [None]
  - CORONARY ARTERY DISEASE [None]
